FAERS Safety Report 10881335 (Version 2)
Quarter: 2015Q1

REPORT INFORMATION
  Report Type: Spontaneous
  Country: IT (occurrence: IT)
  Receive Date: 20150303
  Receipt Date: 20150312
  Transmission Date: 20150721
  Serious: Yes (Other)
  Sender: FDA-Public Use
  Company Number: IT-TEVA-544426ISR

PATIENT
  Age: 36 Year
  Sex: Female

DRUGS (3)
  1. LEVOTIROXINA [Concomitant]
     Active Substance: LEVOTHYROXINE SODIUM
     Indication: HYPOTHYROIDISM
  2. ATORVASTATINA [Concomitant]
     Active Substance: ATORVASTATIN
  3. DROSPIRENONE 3 MG/ETINILESTRADIOLO 20 MCG [Suspect]
     Active Substance: DROSPIRENONE\ETHINYL ESTRADIOL
     Dosage: DROSPIRENONE 3 MG WITH ETINILESTRADIOLO 20 MCG

REACTIONS (2)
  - Transverse sinus thrombosis [Unknown]
  - Haemorrhagic infarction [Unknown]
